FAERS Safety Report 9708156 (Version 3)
Quarter: 2013Q4

REPORT INFORMATION
  Report Type: Spontaneous
  Country: US (occurrence: US)
  Receive Date: 20131125
  Receipt Date: 20131223
  Transmission Date: 20140711
  Serious: No
  Sender: FDA-Public Use
  Company Number: US-GILEAD-2013-0088178

PATIENT
  Sex: Female

DRUGS (3)
  1. LETAIRIS [Suspect]
     Indication: PULMONARY ARTERIAL HYPERTENSION
     Dosage: 5 MG, QD
     Route: 048
     Dates: start: 20130821, end: 201311
  2. LETAIRIS [Suspect]
     Indication: PULMONARY HYPERTENSION
  3. WARFARIN [Concomitant]

REACTIONS (1)
  - Red blood cell count decreased [Unknown]
